FAERS Safety Report 23331226 (Version 1)
Quarter: 2023Q4

REPORT INFORMATION
  Report Type: Spontaneous
  Country: TW (occurrence: TW)
  Receive Date: 20231222
  Receipt Date: 20231222
  Transmission Date: 20240109
  Serious: Yes (Life-Threatening, Other)
  Sender: FDA-Public Use
  Company Number: TW-MLMSERVICE-20231208-4719638-1

PATIENT
  Age: 61 Year
  Sex: Female

DRUGS (8)
  1. DACARBAZINE [Suspect]
     Active Substance: DACARBAZINE
     Indication: Neoplasm progression
     Dosage: 3-DAY COMBINATION
     Dates: start: 2023
  2. DACARBAZINE [Suspect]
     Active Substance: DACARBAZINE
     Indication: Metaplastic breast carcinoma
  3. DOXORUBICIN HYDROCHLORIDE [Suspect]
     Active Substance: DOXORUBICIN HYDROCHLORIDE
     Indication: Neoplasm progression
     Dosage: 3-DAY COMBINATION
     Dates: start: 2023
  4. DOXORUBICIN HYDROCHLORIDE [Suspect]
     Active Substance: DOXORUBICIN HYDROCHLORIDE
     Indication: Metaplastic breast carcinoma
  5. MESNA [Suspect]
     Active Substance: MESNA
     Indication: Neoplasm progression
     Dosage: 3-DAY COMBINATION
     Dates: start: 2023
  6. MESNA [Suspect]
     Active Substance: MESNA
     Indication: Metaplastic breast carcinoma
  7. IFOSFAMIDE [Suspect]
     Active Substance: IFOSFAMIDE
     Indication: Metaplastic breast carcinoma
     Dosage: 3-DAY COMBINATION
     Dates: start: 2023
  8. IFOSFAMIDE [Suspect]
     Active Substance: IFOSFAMIDE
     Indication: Neoplasm progression

REACTIONS (4)
  - Febrile neutropenia [Unknown]
  - Septic shock [Unknown]
  - Hypokalaemia [Unknown]
  - Off label use [Unknown]

NARRATIVE: CASE EVENT DATE: 20230101
